FAERS Safety Report 18660009 (Version 3)
Quarter: 2021Q1

REPORT INFORMATION
  Report Type: Spontaneous
  Country: US (occurrence: US)
  Receive Date: 20201224
  Receipt Date: 20210107
  Transmission Date: 20210419
  Serious: No
  Sender: FDA-Public Use
  Company Number: NVSC2020US337768

PATIENT
  Age: 51 Year
  Sex: Female

DRUGS (2)
  1. TAFINLAR [Suspect]
     Active Substance: DABRAFENIB MESYLATE
     Indication: BREAST CANCER
     Dosage: 150 MG, Q12H
     Route: 048
     Dates: start: 202011
  2. MEKINIST [Suspect]
     Active Substance: TRAMETINIB DIMETHYL SULFOXIDE
     Indication: BREAST CANCER
     Dosage: 2 MG, QD
     Route: 048
     Dates: start: 202011

REACTIONS (7)
  - Thirst [Unknown]
  - Weight decreased [Unknown]
  - Decreased appetite [Unknown]
  - Swelling [Unknown]
  - Product use issue [Unknown]
  - Arthralgia [Unknown]
  - Urticaria [Unknown]

NARRATIVE: CASE EVENT DATE: 202011
